FAERS Safety Report 9478954 (Version 1)
Quarter: 2013Q3

REPORT INFORMATION
  Report Type: Spontaneous
  Country: US (occurrence: US)
  Receive Date: 20130827
  Receipt Date: 20130827
  Transmission Date: 20140515
  Serious: Yes (Other)
  Sender: FDA-Public Use
  Company Number: US-ELI_LILLY_AND_COMPANY-US201308005951

PATIENT
  Age: 50 Year
  Sex: Male

DRUGS (2)
  1. EFFIENT [Suspect]
  2. ASPIRIN [Concomitant]

REACTIONS (1)
  - Graft thrombosis [Unknown]
